FAERS Safety Report 15899605 (Version 1)
Quarter: 2019Q1

REPORT INFORMATION
  Report Type: Spontaneous
  Country: US (occurrence: US)
  Receive Date: 20190201
  Receipt Date: 20190201
  Transmission Date: 20190417
  Serious: No
  Sender: FDA-Public Use
  Company Number: US-PFIZER INC-2019047197

PATIENT
  Age: 7 Year
  Sex: Male

DRUGS (1)
  1. EUCRISA [Suspect]
     Active Substance: CRISABOROLE
     Dosage: UNK, AS NEEDED (APPLY TO THE AFFECTED AREA TWICE A DAY AS NEEDED)
     Route: 061
     Dates: start: 201807

REACTIONS (2)
  - Application site pain [Unknown]
  - Crying [Unknown]
